FAERS Safety Report 5699325-1 (Version None)
Quarter: 2008Q2

REPORT INFORMATION
  Report Type: 
  Country: None (occurrence: None)
  Receive Date: 20080404
  Receipt Date: 20080326
  Transmission Date: 20081010
  Serious: Yes (Other)
  Sender: FDA-Public Use
  Company Number: 08H-163-0314066-00

PATIENT
  Age: 76 Year
  Sex: Female

DRUGS (7)
  1. FENTANYL CITRATE [Suspect]
     Indication: CANCER PAIN
     Dosage: SEE IMAGE
     Route: 042
  2. FENTANYL [Suspect]
     Indication: CANCER PAIN
     Dosage: 100 MCG/HR, TRANSDERMAL;  200 MCG/HR TRANSDERMAL
     Route: 062
  3. GABAPENTIN [Concomitant]
  4. OLANZAPINE [Concomitant]
  5. ACETAMINOPHEN [Concomitant]
  6. KETOROLAC (KETOROLAC) [Concomitant]
  7. HALOPERIDOL [Concomitant]

REACTIONS (4)
  - DELIRIUM [None]
  - HALLUCINATION [None]
  - NEUROTOXICITY [None]
  - PARADOXICAL PAIN [None]
